FAERS Safety Report 8190219-9 (Version None)
Quarter: 2012Q1

REPORT INFORMATION
  Report Type: 
  Country: None (occurrence: None)
  Receive Date: 20120307
  Receipt Date: 20120228
  Transmission Date: 20120608
  Serious: Yes (Other)
  Sender: FDA-Public Use
  Company Number: US-BAYER-2012-019760

PATIENT
  Age: 26 Year
  Sex: Female

DRUGS (1)
  1. BETASERON [Suspect]
     Indication: MULTIPLE SCLEROSIS
     Dosage: 8 MIU, QOD
     Route: 058
     Dates: start: 20111003

REACTIONS (11)
  - INJECTION SITE REACTION [None]
  - INJECTION SITE ERYTHEMA [None]
  - INJECTION SITE HAEMATOMA [None]
  - CHEST PAIN [None]
  - INJECTION SITE MASS [None]
  - PANIC ATTACK [None]
  - TREMOR [None]
  - PAIN IN EXTREMITY [None]
  - GASTRIC DISORDER [None]
  - DIARRHOEA [None]
  - DYSPEPSIA [None]
